FAERS Safety Report 21218741 (Version 1)
Quarter: 2022Q3

REPORT INFORMATION
  Report Type: Spontaneous
  Country: US (occurrence: None)
  Receive Date: 20220816
  Receipt Date: 20220816
  Transmission Date: 20221027
  Serious: Yes (Other)
  Sender: FDA-Public Use
  Company Number: None

PATIENT
  Sex: Male
  Weight: 105 kg

DRUGS (1)
  1. PAXLOVID [Suspect]
     Active Substance: NIRMATRELVIR\RITONAVIR

REACTIONS (6)
  - Abdominal pain upper [None]
  - Asthenia [None]
  - Jaundice [None]
  - Transaminases increased [None]
  - Blood alkaline phosphatase increased [None]
  - Hepatic steatosis [None]
